FAERS Safety Report 6285779-9 (Version None)
Quarter: 2009Q3

REPORT INFORMATION
  Report Type: 
  Country: None (occurrence: None)
  Receive Date: 20090724
  Receipt Date: 20090710
  Transmission Date: 20100115
  Serious: Yes (Other)
  Sender: FDA-Public Use
  Company Number: 2009S1005469

PATIENT
  Age: 74 Year
  Sex: Male

DRUGS (1)
  1. PHOSPHOSODA FLAVOR NOT SPECIFIED [Suspect]
     Indication: COLONOSCOPY
     Dosage: 90 ML; TOTAL; PO
     Route: 048
     Dates: start: 20081001, end: 20081001

REACTIONS (4)
  - DIARRHOEA [None]
  - FATIGUE [None]
  - NEPHROPATHY [None]
  - RENAL FAILURE ACUTE [None]
